FAERS Safety Report 7432429-1 (Version None)
Quarter: 2011Q2

REPORT INFORMATION
  Report Type: 
  Country: None (occurrence: None)
  Receive Date: 20110415
  Receipt Date: 20110407
  Transmission Date: 20111010
  Serious: Yes (Hospitalization)
  Sender: FDA-Public Use
  Company Number: 2011SP015828

PATIENT
  Age: 21 Year
  Sex: Male

DRUGS (3)
  1. NOXAFIL [Suspect]
     Indication: PRODUCT USED FOR UNKNOWN INDICATION
  2. PREDNISOLONE [Concomitant]
  3. TACROLIMUS [Concomitant]

REACTIONS (2)
  - MENTAL STATUS CHANGES [None]
  - CATATONIA [None]
